FAERS Safety Report 8832531 (Version 1)
Quarter: 2012Q4

REPORT INFORMATION
  Report Type: 
  Country: US (occurrence: US)
  Receive Date: 20121010
  Receipt Date: 20121010
  Transmission Date: 20130627
  Serious: No
  Sender: FDA-Public Use
  Company Number: US-BAYER-2012-103950

PATIENT
  Sex: Male

DRUGS (3)
  1. BETASERON [Suspect]
     Indication: RELAPSING-REMITTING MULTIPLE SCLEROSIS
     Dosage: UNK
     Route: 058
     Dates: start: 2003, end: 201205
  2. ACETYLSALICYLIC ACID (} 100 MG) [Concomitant]
     Indication: INFLUENZA LIKE ILLNESS
  3. COPAXONE [Concomitant]

REACTIONS (3)
  - Feeling abnormal [None]
  - Irritability [None]
  - Influenza like illness [None]
